FAERS Safety Report 4468035-0 (Version None)
Quarter: 2004Q4

REPORT INFORMATION
  Report Type: 
  Country: None (occurrence: None)
  Receive Date: 20041004
  Receipt Date: 20041004
  Transmission Date: 20050328
  Serious: Yes (Other)
  Sender: FDA-Public Use
  Company Number: None

PATIENT
  Age: 86 Year
  Sex: Male
  Weight: 72.6 kg

DRUGS (12)
  1. GATIFLOXACIN [Suspect]
  2. BRANDY LIQUID [Concomitant]
  3. TERAZOSIN HCL [Concomitant]
  4. PRAMIPEXOLE [Concomitant]
  5. OXYBUTYNIN CHLORIDE [Concomitant]
  6. LEVOTHYROXINE SODIUM [Concomitant]
  7. FELODIPINE [Concomitant]
  8. CETRIZINE [Concomitant]
  9. CARBIDOPA 25/LEVODOPA [Concomitant]
  10. ALLOPURINOL [Concomitant]
  11. GUAIFENESIN 100MG/5ML [Concomitant]
  12. ACETAMINOPHEN [Concomitant]

REACTIONS (1)
  - CONFUSIONAL STATE [None]
